FAERS Safety Report 9157272 (Version 1)
Quarter: 2013Q1

REPORT INFORMATION
  Report Type: Spontaneous
  Country: US (occurrence: None)
  Receive Date: 20130211
  Receipt Date: 20130211
  Transmission Date: 20140127
  Serious: Yes (Hospitalization)
  Sender: FDA-Public Use
  Company Number: VAL_01378_2013

PATIENT
  Sex: Female

DRUGS (4)
  1. LOPRESSOR [Suspect]
     Indication: HEART RATE INCREASED
     Dosage: 100 BID
  2. LIPITOR [Suspect]
     Indication: BLOOD CHOLESTEROL INCREASED
     Dates: start: 1999, end: 2011
  3. PLAVIX [Concomitant]
  4. DRUGS USED IN DIABETES [Concomitant]

REACTIONS (4)
  - Myocardial infarction [None]
  - Stent malfunction [None]
  - Hypotension [None]
  - Cardiac disorder [None]
